FAERS Safety Report 20106811 (Version 3)
Quarter: 2021Q4

REPORT INFORMATION
  Report Type: Report from Study
  Country: CO (occurrence: CO)
  Receive Date: 20211124
  Receipt Date: 20211213
  Transmission Date: 20220303
  Serious: Yes (Other)
  Sender: FDA-Public Use
  Company Number: CO-NOVARTISPH-NVSC2021CO265974

PATIENT
  Sex: Female
  Weight: 35 kg

DRUGS (4)
  1. OMNITROPE [Suspect]
     Active Substance: SOMATROPIN
     Indication: Product used for unknown indication
     Dosage: 1.5 MG, QD (STRENGTH 15 MG)
     Route: 058
     Dates: start: 20160725
  2. OMNITROPE [Suspect]
     Active Substance: SOMATROPIN
     Dosage: 1.5 MG, QD (RESTING ONLY ON SATURDAYS)
     Route: 058
  3. OMNITROPE [Suspect]
     Active Substance: SOMATROPIN
     Dosage: UNK (STRENGTH 10 MG)
     Route: 065
     Dates: start: 201911
  4. OMNITROPE [Suspect]
     Active Substance: SOMATROPIN
     Dosage: UNK
     Route: 065

REACTIONS (8)
  - Noonan syndrome [Unknown]
  - Short stature [Unknown]
  - Cardiac disorder [Unknown]
  - Spine malformation [Unknown]
  - Scoliosis [Unknown]
  - Product container issue [Unknown]
  - Device delivery system issue [Unknown]
  - Inappropriate schedule of product administration [Unknown]
